FAERS Safety Report 5405961-X (Version None)
Quarter: 2007Q3

REPORT INFORMATION
  Report Type: 
  Country: None (occurrence: None)
  Receive Date: 20070806
  Receipt Date: 20070724
  Transmission Date: 20080115
  Serious: Yes (Other)
  Sender: FDA-Public Use
  Company Number: EE-NOVOPROD-265892

PATIENT
  Sex: Female
  Weight: 4.574 kg

DRUGS (3)
  1. LEVEMIR [Suspect]
     Dosage: 24-32 MG, QD
     Route: 064
     Dates: start: 20070130
  2. NOVORAPID [Suspect]
     Dosage: 26-44 MG, QD
     Route: 064
     Dates: start: 20070116
  3. CANIFUG [Concomitant]
     Dosage: .1 UNK, QD
     Route: 064
     Dates: start: 20070525, end: 20070530

REACTIONS (2)
  - HYPOGLYCAEMIA NEONATAL [None]
  - MACROSOMIA [None]
